FAERS Safety Report 25082325 (Version 2)
Quarter: 2025Q2

REPORT INFORMATION
  Report Type: Spontaneous
  Country: JP (occurrence: JP)
  Receive Date: 20250317
  Receipt Date: 20250519
  Transmission Date: 20250717
  Serious: Yes (Other)
  Sender: ASTELLAS
  Company Number: JP-ASTELLAS-2025-AER-014492

PATIENT
  Age: 70 Year
  Sex: Male

DRUGS (1)
  1. VYLOY [Suspect]
     Active Substance: ZOLBETUXIMAB-CLZB
     Indication: Gastric cancer
     Route: 042
     Dates: start: 20240926

REACTIONS (2)
  - Compression fracture [Not Recovered/Not Resolved]
  - Metastases to diaphragm [Not Recovered/Not Resolved]

NARRATIVE: CASE EVENT DATE: 20250201
